FAERS Safety Report 4466443-5 (Version None)
Quarter: 2004Q4

REPORT INFORMATION
  Report Type: 
  Country: None (occurrence: None)
  Receive Date: 20041005
  Receipt Date: 20040929
  Transmission Date: 20050328
  Serious: Yes (Hospitalization)
  Sender: FDA-Public Use
  Company Number: FR-MERCK-0409FRA00117

PATIENT
  Age: 66 Year
  Sex: Male

DRUGS (3)
  1. ASPIRIN LYSINE [Concomitant]
     Route: 048
  2. ZOCOR [Suspect]
     Indication: HYPERCHOLESTEROLAEMIA
     Route: 048
     Dates: start: 19900101
  3. SUCRALFATE [Concomitant]
     Indication: ULCER
     Route: 048

REACTIONS (2)
  - ANAEMIA MACROCYTIC [None]
  - MYELODYSPLASTIC SYNDROME [None]
